FAERS Safety Report 16982389 (Version 1)
Quarter: 2019Q4

REPORT INFORMATION
  Report Type: Report from Study
  Country: US (occurrence: US)
  Receive Date: 20191101
  Receipt Date: 20191101
  Transmission Date: 20200122
  Serious: Yes (Death)
  Sender: FDA-Public Use
  Company Number: US-ROCHE-2457572

PATIENT
  Age: 74 Year
  Sex: Male

DRUGS (2)
  1. ATEZOLIZUMAB. [Suspect]
     Active Substance: ATEZOLIZUMAB
     Indication: CHRONIC MYELOMONOCYTIC LEUKAEMIA
     Dosage: DATE OF MOST RECENT DOSE OF ATEZOLIZUMAB WAS ON 17/SEP/2019 PRIOR TO EVENT ONSET DATE.
     Route: 042
  2. GUADECITABINE [Suspect]
     Active Substance: GUADECITABINE
     Indication: CHRONIC MYELOMONOCYTIC LEUKAEMIA
     Dosage: DATE OF MOST RECENT DOSE OF GUADECITABINE WAS ON 17/SEP/2019 PRIOR TO EVENT ONSET DATE.
     Route: 058

REACTIONS (1)
  - Disease progression [Fatal]

NARRATIVE: CASE EVENT DATE: 20191024
